FAERS Safety Report 25450380 (Version 1)
Quarter: 2025Q2

REPORT INFORMATION
  Report Type: Spontaneous
  Country: IT (occurrence: IT)
  Receive Date: 20250618
  Receipt Date: 20250618
  Transmission Date: 20250717
  Serious: Yes (Other)
  Sender: CELLTRION
  Company Number: IT-CELLTRION INC.-2025IT018535

PATIENT

DRUGS (1)
  1. RITUXIMAB [Suspect]
     Active Substance: RITUXIMAB
     Indication: Anti-myelin-associated glycoprotein associated polyneuropathy
     Dosage: 375 MG/M2, EVERY 4 WEEKS
     Route: 042

REACTIONS (4)
  - Colon cancer [Recovering/Resolving]
  - Anti-myelin-associated glycoprotein associated polyneuropathy [Recovering/Resolving]
  - Blood immunoglobulin M increased [Recovering/Resolving]
  - Intentional product use issue [Unknown]
